FAERS Safety Report 7006077-1 (Version None)
Quarter: 2010Q3

REPORT INFORMATION
  Report Type: 
  Country: None (occurrence: None)
  Receive Date: 20100921
  Receipt Date: 20100909
  Transmission Date: 20110219
  Serious: Yes (Death, Congenital Anomaly, Other)
  Sender: FDA-Public Use
  Company Number: FR-PFIZER INC-2010113817

PATIENT

DRUGS (7)
  1. LYRICA [Suspect]
     Indication: PAIN
     Dosage: 75 MG, 1X/DAY
     Route: 064
     Dates: start: 20091214, end: 20100127
  2. KALETRA [Suspect]
     Indication: HIV INFECTION
     Dosage: 1 DF, 4X/DAY
     Route: 064
     Dates: start: 20070101
  3. TRUVADA [Suspect]
     Indication: HIV INFECTION
     Dosage: 1 DF, 1X/DAY
     Route: 064
     Dates: start: 20070101, end: 20100127
  4. COMBIVIR [Suspect]
     Indication: HIV INFECTION
     Dosage: 1 DF, 2X/DAY
     Route: 064
     Dates: start: 20100127
  5. ASPEGIC 1000 [Suspect]
     Dosage: 100 MG, 1X/DAY
     Route: 064
     Dates: start: 20100319, end: 20100409
  6. GUTRON [Suspect]
     Indication: ORTHOSTATIC HYPOTENSION
     Dosage: 1 DF, 1X/DAY
     Route: 064
     Dates: start: 20091214, end: 20100127
  7. SPECIAFOLDINE [Concomitant]
     Dosage: UNK
     Route: 064
     Dates: start: 20100127

REACTIONS (4)
  - ABORTION INDUCED [None]
  - CEREBELLAR HYPOPLASIA [None]
  - DRUG EXPOSURE DURING PREGNANCY [None]
  - HYDROCEPHALUS [None]
